FAERS Safety Report 8049363-9 (Version None)
Quarter: 2011Q4

REPORT INFORMATION
  Report Type: 
  Country: None (occurrence: None)
  Receive Date: 20111209
  Receipt Date: 20111025
  Transmission Date: 20120403
  Serious: No
  Sender: FDA-Public Use
  Company Number: TH-2011-00444

PATIENT

DRUGS (1)
  1. EGRIFTA [Suspect]
     Indication: PRODUCT USED FOR UNKNOWN INDICATION
     Dates: end: 20111013

REACTIONS (4)
  - INFLUENZA [None]
  - HEART RATE INCREASED [None]
  - ANXIETY [None]
  - HYPERTENSION [None]
